FAERS Safety Report 5156001-1 (Version None)
Quarter: 2006Q4

REPORT INFORMATION
  Report Type: 
  Country: None (occurrence: None)
  Receive Date: 20061122
  Receipt Date: 20061115
  Transmission Date: 20070319
  Serious: Yes (Death)
  Sender: FDA-Public Use
  Company Number: JP-JNJFOC-20051203784

PATIENT
  Sex: Male

DRUGS (8)
  1. RISPERDAL [Suspect]
     Indication: SCHIZOPHRENIA
     Route: 048
  2. ZOTEPINE [Suspect]
     Indication: SCHIZOPHRENIA
     Route: 048
  3. LEVOMEPROMAZINE MALEATE [Suspect]
     Indication: SCHIZOPHRENIA
  4. VALPROATE SODIUM [Concomitant]
     Indication: SCHIZOPHRENIA
     Route: 048
  5. TRIHEXYPHENIDYL HYDROCHLORIDE [Concomitant]
     Route: 048
  6. CLOXAZOLAM [Concomitant]
     Route: 048
  7. ETIZOLAM [Concomitant]
     Route: 048
  8. ATORVASTATIN CALCIUM [Concomitant]
     Indication: HYPERLIPIDAEMIA
     Route: 048

REACTIONS (4)
  - DIABETIC KETOACIDOSIS [None]
  - EXTRAPYRAMIDAL DISORDER [None]
  - OBESITY [None]
  - SEPSIS [None]
